FAERS Safety Report 25144605 (Version 1)
Quarter: 2025Q2

REPORT INFORMATION
  Report Type: Spontaneous
  Country: IT (occurrence: IT)
  Receive Date: 20250401
  Receipt Date: 20250401
  Transmission Date: 20250717
  Serious: Yes (Other)
  Sender: AMGEN
  Company Number: IT-AMGEN-ITASP2025060034

PATIENT

DRUGS (4)
  1. ADALIMUMAB [Suspect]
     Active Substance: ADALIMUMAB
     Indication: Rheumatoid arthritis
     Route: 065
  2. ADALIMUMAB [Suspect]
     Active Substance: ADALIMUMAB
     Indication: Juvenile idiopathic arthritis
  3. ADALIMUMAB [Suspect]
     Active Substance: ADALIMUMAB
     Indication: Axial spondyloarthritis
  4. ADALIMUMAB [Suspect]
     Active Substance: ADALIMUMAB
     Indication: Psoriatic arthropathy

REACTIONS (33)
  - Crohn^s disease [Unknown]
  - Lower respiratory tract infection [Unknown]
  - Psoriatic arthropathy [Unknown]
  - Therapeutic response changed [Unknown]
  - Injection site pain [Unknown]
  - Rash pustular [Unknown]
  - Drug ineffective [Unknown]
  - Arthralgia [Unknown]
  - Psoriasis [Unknown]
  - Pruritus [Unknown]
  - Headache [Unknown]
  - Arthritis [Unknown]
  - Condition aggravated [Unknown]
  - Loss of therapeutic response [Unknown]
  - Product substitution issue [Unknown]
  - COVID-19 [Unknown]
  - Urticaria [Unknown]
  - Erythema [Unknown]
  - Skin exfoliation [Unknown]
  - Pyrexia [Unknown]
  - Dizziness [Unknown]
  - Abdominal pain [Unknown]
  - Malaise [Unknown]
  - Asthenia [Unknown]
  - Dyspnoea [Unknown]
  - Back pain [Unknown]
  - Therapy non-responder [Unknown]
  - Injection site erythema [Unknown]
  - Paraesthesia [Unknown]
  - Myalgia [Unknown]
  - Cough [Unknown]
  - Vomiting [Unknown]
  - Anxiety [Unknown]
